FAERS Safety Report 25555606 (Version 2)
Quarter: 2025Q3

REPORT INFORMATION
  Report Type: Spontaneous
  Country: US (occurrence: US)
  Receive Date: 20250715
  Receipt Date: 20250730
  Transmission Date: 20251021
  Serious: Yes (Hospitalization)
  Sender: TEVA
  Company Number: US-TEVA-VS-3349820

PATIENT
  Age: 2 Year
  Sex: Female

DRUGS (2)
  1. CEPHALEXIN [Suspect]
     Active Substance: CEPHALEXIN
     Indication: Pyelonephritis
     Route: 065
     Dates: start: 202405
  2. VIGABATRIN [Suspect]
     Active Substance: VIGABATRIN
     Indication: Febrile convulsion
     Route: 065
     Dates: start: 202405

REACTIONS (3)
  - Urinary tract infection staphylococcal [Unknown]
  - Escherichia urinary tract infection [Unknown]
  - Drug ineffective [Unknown]
